FAERS Safety Report 24741527 (Version 3)
Quarter: 2025Q3

REPORT INFORMATION
  Report Type: Spontaneous
  Country: EU (occurrence: EU)
  Receive Date: 20241217
  Receipt Date: 20250803
  Transmission Date: 20251021
  Serious: Yes (Life-Threatening, Other)
  Sender: ALEXION PHARMACEUTICALS
  Company Number: None

PATIENT
  Age: 71 Year
  Sex: Male

DRUGS (3)
  1. TEZSPIRE [Suspect]
     Active Substance: TEZEPELUMAB-EKKO
     Indication: Asthma
     Dosage: 210 MILLIGRAM, QMONTH
     Dates: start: 202409, end: 202410
  2. TEZSPIRE [Suspect]
     Active Substance: TEZEPELUMAB-EKKO
  3. PREDNISONE [Suspect]
     Active Substance: PREDNISONE
     Indication: Asthma
     Dosage: 10 MILLIGRAM, QD
     Dates: end: 20241105

REACTIONS (4)
  - Sepsis [Recovered/Resolved]
  - Lung disorder [Recovered/Resolved]
  - Pneumonia [Unknown]
  - Tooth abscess [Unknown]

NARRATIVE: CASE EVENT DATE: 20241101
